FAERS Safety Report 4491858-9 (Version None)
Quarter: 2004Q4

REPORT INFORMATION
  Report Type: 
  Country: None (occurrence: None)
  Receive Date: 20041028
  Receipt Date: 20041028
  Transmission Date: 20050328
  Serious: Yes (Hospitalization)
  Sender: FDA-Public Use
  Company Number: None

PATIENT
  Age: 82 Year
  Sex: Female
  Weight: 90 kg

DRUGS (12)
  1. QUINAPRIL HCL [Suspect]
     Indication: HYPERTENSION
     Dosage: 40 MG QD ORAL
     Route: 048
     Dates: start: 20040201, end: 20040430
  2. ACCUPRIL [Concomitant]
  3. PREMARIN [Concomitant]
  4. LEVOXYL [Concomitant]
  5. MORPHINE SULFATE [Concomitant]
  6. PERPHENAZINE AMIT -225 [Concomitant]
  7. CIPRO [Concomitant]
  8. PREVACID [Concomitant]
  9. CELEXA [Concomitant]
  10. HYDROCHLOROTHIAZIDE [Concomitant]
  11. UNIPHYL [Concomitant]
  12. DARVOCET [Concomitant]

REACTIONS (1)
  - ANGIONEUROTIC OEDEMA [None]
